FAERS Safety Report 4900283-5 (Version None)
Quarter: 2006Q1

REPORT INFORMATION
  Report Type: 
  Country: None (occurrence: None)
  Receive Date: 20060203
  Receipt Date: 20050620
  Transmission Date: 20060701
  Serious: Yes (Disabling)
  Sender: FDA-Public Use
  Company Number: DE-ROCHE-408086

PATIENT
  Age: 28 Year
  Sex: Female
  Weight: 66 kg

DRUGS (2)
  1. PEGASYS [Suspect]
     Indication: HEPATITIS C
     Route: 058
     Dates: start: 20050118, end: 20050517
  2. COPEGUS [Concomitant]
     Indication: HEPATITIS C
     Route: 048
     Dates: start: 20050118, end: 20050517

REACTIONS (8)
  - ABDOMINAL DISCOMFORT [None]
  - ASTHMA [None]
  - DIABETES MELLITUS INSULIN-DEPENDENT [None]
  - DYSPHONIA [None]
  - LUNG DISORDER [None]
  - SCAR [None]
  - SPUTUM DISCOLOURED [None]
  - WEIGHT INCREASED [None]
